FAERS Safety Report 15903964 (Version 1)
Quarter: 2019Q1

REPORT INFORMATION
  Report Type: Spontaneous
  Country: US (occurrence: US)
  Receive Date: 20190204
  Receipt Date: 20190204
  Transmission Date: 20190417
  Serious: No
  Sender: FDA-Public Use
  Company Number: US-TEVA-2019-US-999536

PATIENT
  Sex: Female

DRUGS (1)
  1. DICLOXACILLIN CAPSULES [Suspect]
     Active Substance: DICLOXACILLIN
     Indication: MASTITIS
     Route: 065
     Dates: start: 20190112, end: 20190114

REACTIONS (4)
  - Muscle spasms [Recovered/Resolved]
  - Product storage error [Unknown]
  - Urinary tract infection [Unknown]
  - Product storage error [None]

NARRATIVE: CASE EVENT DATE: 20190112
